FAERS Safety Report 16163659 (Version 1)
Quarter: 2019Q2

REPORT INFORMATION
  Report Type: Spontaneous
  Country: US (occurrence: BR)
  Receive Date: 20190405
  Receipt Date: 20190405
  Transmission Date: 20190711
  Serious: Yes (Hospitalization, Other)
  Sender: FDA-Public Use
  Company Number: US-SUNOVION-2019SUN001355

PATIENT
  Sex: Female

DRUGS (2)
  1. INDACATEROL [Suspect]
     Active Substance: INDACATEROL
     Indication: DYSPNOEA
  2. INDACATEROL [Suspect]
     Active Substance: INDACATEROL
     Indication: EMPHYSEMA
     Dosage: 1 DF, QD (IN MORNING)
     Route: 065

REACTIONS (5)
  - Confusional state [Recovering/Resolving]
  - Wrong product administered [Recovering/Resolving]
  - Dyspnoea [Recovering/Resolving]
  - Pneumonia [Recovering/Resolving]
  - Influenza [Recovering/Resolving]
